FAERS Safety Report 8244698-9 (Version None)
Quarter: 2012Q1

REPORT INFORMATION
  Report Type: 
  Country: None (occurrence: None)
  Receive Date: 20120329
  Receipt Date: 20110429
  Transmission Date: 20120608
  Serious: No
  Sender: FDA-Public Use
  Company Number: US-MYLANLABS-2011S1001335

PATIENT
  Age: 37 Year
  Sex: Female

DRUGS (8)
  1. LEVOTHYROXINE SODIUM [Concomitant]
  2. HYDROCHLOROTHIAZIDE [Concomitant]
  3. MORPHINE [Concomitant]
  4. WELCHOL [Concomitant]
  5. HYDROCODONE BITARTRATE [Concomitant]
     Indication: PAIN
  6. FENTANYL-100 [Suspect]
     Indication: PAIN
     Dosage: Q3D
     Route: 062
     Dates: start: 20100301
  7. LISINOPRIL [Concomitant]
  8. CYMBALTA [Concomitant]

REACTIONS (7)
  - DIZZINESS [None]
  - TOXICITY TO VARIOUS AGENTS [None]
  - FEELING ABNORMAL [None]
  - NAUSEA [None]
  - DRUG EFFECT INCREASED [None]
  - DISORIENTATION [None]
  - CONFUSIONAL STATE [None]
